FAERS Safety Report 10255988 (Version 1)
Quarter: 2014Q2

REPORT INFORMATION
  Report Type: Spontaneous
  Country: TN (occurrence: TN)
  Receive Date: 20140624
  Receipt Date: 20140624
  Transmission Date: 20141212
  Serious: Yes (Other)
  Sender: FDA-Public Use
  Company Number: TN-GLAXOSMITHKLINE-B1006428A

PATIENT
  Age: 49 Year
  Sex: Female

DRUGS (4)
  1. RANITIDINE [Suspect]
     Indication: GASTRIC DISORDER
     Route: 042
  2. CIMETIDINE [Suspect]
     Indication: SKIN TEST
     Route: 065
  3. BECLOMETASONE [Concomitant]
     Indication: ASTHMA
     Route: 065
  4. SALBUTAMOL [Concomitant]
     Indication: ASTHMA
     Route: 065

REACTIONS (6)
  - Anaphylactic reaction [Recovered/Resolved]
  - Flushing [Recovered/Resolved]
  - Angioedema [Recovered/Resolved]
  - Dyspnoea [Recovered/Resolved]
  - Pruritus [Recovered/Resolved]
  - Skin test positive [Unknown]
